FAERS Safety Report 5132452-6 (Version None)
Quarter: 2006Q4

REPORT INFORMATION
  Report Type: 
  Country: None (occurrence: None)
  Receive Date: 20061017
  Receipt Date: 20060928
  Transmission Date: 20070319
  Serious: Yes (Hospitalization)
  Sender: FDA-Public Use
  Company Number: DSA_28772_2006

PATIENT
  Age: 57 Year
  Sex: Male

DRUGS (9)
  1. ENALAPRIL MALEATE [Suspect]
     Indication: HYPERTENSION
     Dosage: DF PO
     Route: 048
     Dates: start: 20060807, end: 20060905
  2. SPIRONOLACTONE [Suspect]
     Indication: HYPERTENSION
     Dosage: DF PO
     Route: 048
     Dates: start: 20060807, end: 20060905
  3. ASPIRIN [Concomitant]
  4. ATAZANAVIR SULFATE [Concomitant]
  5. ENALAPRIL MALEATE W/HYDROCHLOROTHIAZIDE [Concomitant]
  6. FELODIPINE [Concomitant]
  7. FUROSEMIDE [Concomitant]
  8. RIBOFLAVIN TETRABUTYRATE [Concomitant]
  9. RITONAVIR [Concomitant]

REACTIONS (6)
  - BLOOD UREA INCREASED [None]
  - DEHYDRATION [None]
  - DIARRHOEA [None]
  - ELECTROCARDIOGRAM T WAVE PEAKED [None]
  - HYPERKALAEMIA [None]
  - HYPONATRAEMIA [None]
